FAERS Safety Report 5567468-9 (Version None)
Quarter: 2007Q4

REPORT INFORMATION
  Report Type: 
  Country: None (occurrence: None)
  Receive Date: 20071219
  Receipt Date: 20071214
  Transmission Date: 20080405
  Serious: Yes (Hospitalization)
  Sender: FDA-Public Use
  Company Number: US-MERCK-0710USA03961

PATIENT
  Age: 51 Year
  Sex: Female

DRUGS (9)
  1. JANUVIA [Suspect]
     Indication: DIABETES MELLITUS
     Route: 048
     Dates: start: 20060101, end: 20070101
  2. HUMALOG [Concomitant]
     Route: 065
  3. AVAPRO [Concomitant]
     Route: 065
  4. LISINOPRIL [Concomitant]
     Route: 065
  5. CRESTOR [Concomitant]
     Route: 065
  6. LYRICA [Concomitant]
     Route: 065
  7. AMBIEN [Concomitant]
     Route: 065
  8. PREVACID [Concomitant]
     Route: 065
  9. INSULIN [Concomitant]
     Route: 065

REACTIONS (1)
  - PANCREATITIS [None]
